FAERS Safety Report 8238821-X (Version None)
Quarter: 2012Q1

REPORT INFORMATION
  Report Type: 
  Country: None (occurrence: None)
  Receive Date: 20120327
  Receipt Date: 20120321
  Transmission Date: 20120608
  Serious: Yes (Other)
  Sender: FDA-Public Use
  Company Number: CHPA2012US005265

PATIENT
  Age: 86 Year
  Sex: Male

DRUGS (4)
  1. VOLTAREN [Suspect]
     Dosage: 1.5 INCH
     Route: 061
  2. VOLTAREN [Suspect]
     Indication: ANALGESIC THERAPY
     Dosage: 1 INCH ON EACH KNEE AS NEEDED
     Route: 061
     Dates: start: 20070101
  3. ALEVE                              /00256202/ [Concomitant]
     Dosage: 2 DF, PRN
  4. SYNVISC [Concomitant]
     Indication: PAIN

REACTIONS (4)
  - RASH [None]
  - OFF LABEL USE [None]
  - WRONG TECHNIQUE IN DRUG USAGE PROCESS [None]
  - CELLULITIS [None]
